FAERS Safety Report 5355096-X (Version None)
Quarter: 2007Q2

REPORT INFORMATION
  Report Type: 
  Country: None (occurrence: None)
  Receive Date: 20070613
  Receipt Date: 20070605
  Transmission Date: 20071010
  Serious: Yes (Other)
  Sender: FDA-Public Use
  Company Number: PHBS2007AT08871

PATIENT
  Age: 43 Year
  Sex: Female

DRUGS (7)
  1. ZOMETA [Suspect]
     Indication: METASTASES TO BONE
     Dosage: 4 MG/EVERY 3-4 WKS
     Route: 042
     Dates: start: 20050301
  2. EPIRUBICIN [Concomitant]
     Indication: RADIATION EXPOSURE
     Dates: start: 19990101
  3. TAXOTERE [Concomitant]
     Dates: start: 19990101, end: 20000101
  4. TAMOXIFEN CITRATE [Concomitant]
     Dates: start: 20000101, end: 20050101
  5. FEMARA [Concomitant]
     Dates: start: 20050901, end: 20060701
  6. FASLODEX [Concomitant]
     Dates: start: 20060101
  7. TRENANTONE [Concomitant]

REACTIONS (1)
  - OSTEONECROSIS [None]
